FAERS Safety Report 16186118 (Version 2)
Quarter: 2019Q2

REPORT INFORMATION
  Report Type: Spontaneous
  Country: ES (occurrence: ES)
  Receive Date: 20190411
  Receipt Date: 20190418
  Transmission Date: 20190711
  Serious: Yes (Other)
  Sender: FDA-Public Use
  Company Number: ES-GILEAD-2019-0401447

PATIENT
  Age: 42 Year
  Sex: Male

DRUGS (1)
  1. DESCOVY [Suspect]
     Active Substance: EMTRICITABINE\TENOFOVIR ALAFENAMIDE FUMARATE
     Indication: HIV INFECTION
     Dosage: UNK
     Route: 065
     Dates: start: 20181203

REACTIONS (7)
  - Pneumonia [Unknown]
  - Treatment noncompliance [Unknown]
  - Pneumocystis jirovecii infection [Unknown]
  - Acquired immunodeficiency syndrome [Unknown]
  - Emphysema [Unknown]
  - Immunosuppression [Unknown]
  - Oral candidiasis [Unknown]

NARRATIVE: CASE EVENT DATE: 20181207
